FAERS Safety Report 10617791 (Version 2)
Quarter: 2014Q4

REPORT INFORMATION
  Report Type: Spontaneous
  Country: ES (occurrence: ES)
  Receive Date: 20141201
  Receipt Date: 20141217
  Transmission Date: 20150529
  Serious: Yes (Disabling, Other)
  Sender: FDA-Public Use
  Company Number: ES-ABBVIE-14P-144-1314025-00

PATIENT
  Age: 44 Year
  Sex: Male

DRUGS (4)
  1. DEPAKINE [Suspect]
     Active Substance: VALPROATE SODIUM
     Indication: EPILEPSY
     Route: 048
     Dates: start: 2013
  2. LEVETIRACETAM. [Suspect]
     Active Substance: LEVETIRACETAM
     Indication: EPILEPSY
     Route: 065
  3. RIVOTRIL [Suspect]
     Active Substance: CLONAZEPAM
     Indication: EPILEPSY
     Route: 065
     Dates: start: 201405
  4. LAMOTRIGINE. [Suspect]
     Active Substance: LAMOTRIGINE
     Indication: EPILEPSY
     Route: 065

REACTIONS (2)
  - Vision blurred [Recovered/Resolved with Sequelae]
  - Optic ischaemic neuropathy [Recovered/Resolved with Sequelae]

NARRATIVE: CASE EVENT DATE: 201411
